FAERS Safety Report 19369859 (Version 1)
Quarter: 2021Q2

REPORT INFORMATION
  Report Type: Spontaneous
  Country: PL (occurrence: PL)
  Receive Date: 20210604
  Receipt Date: 20210604
  Transmission Date: 20210717
  Serious: Yes (Other)
  Sender: FDA-Public Use
  Company Number: PL-AUROBINDO-AUR-APL-2021-022337

PATIENT
  Age: 19 Year
  Sex: Female

DRUGS (1)
  1. APO?NAPRO 250 MG [Suspect]
     Active Substance: NAPROXEN
     Indication: ARTHRALGIA
     Dosage: 250 MILLIGRAM, TWO TIMES A DAY
     Route: 048

REACTIONS (7)
  - Ovarian cyst [Recovering/Resolving]
  - Adnexa uteri pain [Recovering/Resolving]
  - Cervical discharge [Recovering/Resolving]
  - Menstruation delayed [Recovering/Resolving]
  - Diarrhoea [Recovering/Resolving]
  - Somnolence [Recovering/Resolving]
  - Epistaxis [Recovering/Resolving]
